FAERS Safety Report 5035715-8 (Version None)
Quarter: 2006Q2

REPORT INFORMATION
  Report Type: 
  Country: None (occurrence: None)
  Receive Date: 20060627
  Receipt Date: 20060616
  Transmission Date: 20061013
  Serious: Yes (Hospitalization)
  Sender: FDA-Public Use
  Company Number: FR-GILEAD-2006-0009749

PATIENT
  Age: 56 Year
  Sex: Male

DRUGS (3)
  1. VIREAD [Suspect]
     Route: 048
     Dates: start: 20050608, end: 20060303
  2. EPIVIR [Concomitant]
     Dates: start: 20030924
  3. KALETRA [Concomitant]
     Dates: start: 20050608

REACTIONS (2)
  - BONE PAIN [None]
  - FANCONI SYNDROME ACQUIRED [None]
